FAERS Safety Report 10699833 (Version 1)
Quarter: 2014Q4

REPORT INFORMATION
  Report Type: Spontaneous
  Country: US (occurrence: None)
  Receive Date: 20141215
  Receipt Date: 20141215
  Transmission Date: 20150529
  Serious: Yes (Other)
  Sender: FDA-Public Use
  Company Number: GAM-431-14-GB

PATIENT
  Age: 27 Year
  Sex: Female

DRUGS (1)
  1. OCTAGAM IMMUNE GLOBULIN (HUMAN) [Suspect]
     Active Substance: HUMAN IMMUNOGLOBULIN G
     Indication: COMBINED IMMUNODEFICIENCY
     Route: 042
     Dates: start: 20141128, end: 20141128

REACTIONS (7)
  - Infusion related reaction [None]
  - Respiratory distress [None]
  - Hyperventilation [None]
  - Malaise [None]
  - Altered state of consciousness [None]
  - Pruritus [None]
  - Panic reaction [None]

NARRATIVE: CASE EVENT DATE: 20141128
